FAERS Safety Report 8564832-0 (Version None)
Quarter: 2012Q3

REPORT INFORMATION
  Report Type: 
  Country: None (occurrence: None)
  Receive Date: 20120803
  Receipt Date: 20120727
  Transmission Date: 20120928
  Serious: Yes (Death, Hospitalization, Other)
  Sender: FDA-Public Use
  Company Number: FI-ELI_LILLY_AND_COMPANY-FI201203002022

PATIENT
  Sex: Female

DRUGS (6)
  1. STATIN                             /00084401/ [Concomitant]
     Indication: HYPERCHOLESTEROLAEMIA
  2. PRIMASPAN [Concomitant]
     Indication: ANTICOAGULANT THERAPY
     Dosage: 50 MG, UNK
  3. DUREKAL [Concomitant]
     Indication: MINERAL SUPPLEMENTATION
  4. ACETAMINOPHEN [Concomitant]
     Indication: PAIN
  5. OBSIDAN                            /00023514/ [Concomitant]
     Dosage: 1 DF, QD
     Dates: start: 20110103
  6. FORTEO [Suspect]
     Indication: OSTEOPOROSIS
     Dosage: 20 UG, QD
     Route: 058
     Dates: start: 20110103

REACTIONS (9)
  - CORONARY ARTERY DISEASE [None]
  - DIVERTICULUM INTESTINAL [None]
  - AORTIC VALVE STENOSIS [None]
  - GALLBLADDER DISORDER [None]
  - MELAENA [None]
  - VISCERAL CONGESTION [None]
  - RENAL DISORDER [None]
  - PULMONARY OEDEMA [None]
  - CHOLELITHIASIS [None]
